FAERS Safety Report 4407501-0 (Version None)
Quarter: 2004Q3

REPORT INFORMATION
  Report Type: 
  Country: None (occurrence: None)
  Receive Date: 20040722
  Receipt Date: 20040708
  Transmission Date: 20050211
  Serious: Yes (Disabling)
  Sender: FDA-Public Use
  Company Number: 2004041991

PATIENT
  Age: 39 Year
  Sex: Male
  Weight: 89 kg

DRUGS (4)
  1. PHENYTOIN SODIUM [Suspect]
     Indication: PARTIAL SEIZURES
     Dosage: 400 MG (400 MG, 1 IN 1 D), ORAL
     Route: 048
  2. PHENYTOIN SODIUM [Suspect]
     Indication: SUBDURAL HAEMATOMA
     Dosage: 400 MG (400 MG, 1 IN 1 D), ORAL
     Route: 048
  3. LAMOTRIGINE [Suspect]
     Indication: PARTIAL SEIZURES
     Dosage: 400 MG (200 MG, 2 IN 1 D)
     Route: 048
     Dates: start: 20030301
  4. LAMOTRIGINE [Suspect]
     Indication: SUBDURAL HAEMATOMA
     Dosage: 400 MG (200 MG, 2 IN 1 D)
     Route: 048
     Dates: start: 20030301

REACTIONS (5)
  - ANTICONVULSANT DRUG LEVEL ABOVE THERAPEUTIC [None]
  - FATIGUE [None]
  - PARTIAL SEIZURES [None]
  - SEDATION [None]
  - THERAPEUTIC RESPONSE DECREASED [None]
